FAERS Safety Report 6731802-4 (Version None)
Quarter: 2010Q2

REPORT INFORMATION
  Report Type: 
  Country: None (occurrence: None)
  Receive Date: 20100519
  Receipt Date: 20100507
  Transmission Date: 20101027
  Serious: Yes (Other)
  Sender: FDA-Public Use
  Company Number: AT-PFIZER INC-2010057565

PATIENT
  Age: 24 Year
  Sex: Male

DRUGS (1)
  1. ZELDOX [Suspect]
     Indication: PSYCHOTIC DISORDER
     Dosage: 40 MG, 1X/DAY
     Route: 048

REACTIONS (1)
  - OROPHARYNGEAL SPASM [None]
